FAERS Safety Report 7955085-2 (Version None)
Quarter: 2011Q4

REPORT INFORMATION
  Report Type: 
  Country: None (occurrence: None)
  Receive Date: 20111202
  Receipt Date: 20111125
  Transmission Date: 20120403
  Serious: Yes (Other)
  Sender: FDA-Public Use
  Company Number: BR-BAYER-2011-113942

PATIENT
  Age: 30 Year
  Sex: Female
  Weight: 59 kg

DRUGS (6)
  1. LISADOR [Concomitant]
     Indication: HEADACHE
     Dosage: 1 DF, PRN
     Route: 048
  2. AZELAIC ACID [Suspect]
     Indication: ROSACEA
     Dosage: UNK
     Route: 061
     Dates: start: 20111122
  3. AZELAIC ACID [Suspect]
     Dosage: UNK
     Route: 061
     Dates: start: 20111122
  4. TILEXIM [Concomitant]
     Indication: BACK PAIN
     Dosage: 1 DF, PRN
     Route: 048
  5. LANSOPRAZOLE [Concomitant]
     Indication: ABDOMINAL PAIN UPPER
     Dosage: 1 DF, QD
     Route: 048
     Dates: start: 20090101
  6. ESTRADIOL VALERATE/DIENOGEST [Suspect]
     Indication: CONTRACEPTION
     Dosage: 1 DF, QD
     Route: 048
     Dates: start: 20100101

REACTIONS (12)
  - ROSACEA [None]
  - MOOD ALTERED [None]
  - ALOPECIA [None]
  - ANGINA PECTORIS [None]
  - SKIN DISORDER [None]
  - VISION BLURRED [None]
  - WEIGHT INCREASED [None]
  - NERVOUSNESS [None]
  - MASS [None]
  - PAIN IN EXTREMITY [None]
  - ONYCHOMYCOSIS [None]
  - APPLICATION SITE PARAESTHESIA [None]
